FAERS Safety Report 10017918 (Version 2)
Quarter: 2014Q2

REPORT INFORMATION
  Report Type: Spontaneous
  Country: US (occurrence: US)
  Receive Date: 20140318
  Receipt Date: 20140514
  Transmission Date: 20141212
  Serious: No
  Sender: FDA-Public Use
  Company Number: US-009507513-1403USA002761

PATIENT
  Age: 65 Year
  Sex: Female
  Weight: 68.27 kg

DRUGS (4)
  1. OXYTROL FOR WOMEN [Suspect]
     Indication: URINARY INCONTINENCE
     Dosage: 1 DF, UNKNOWN
     Route: 062
     Dates: start: 201312, end: 201403
  2. LOVASTATIN [Concomitant]
     Indication: BLOOD CHOLESTEROL INCREASED
     Dosage: 20 MG, UNKNOWN
  3. LISINOPRIL [Concomitant]
     Indication: HYPERTENSION
     Dosage: 10 MG, UNKNOWN
  4. ESTRADIOL [Concomitant]
     Indication: HORMONE REPLACEMENT THERAPY
     Dosage: 0.05 MG, UNKNOWN

REACTIONS (3)
  - Application site bruise [Recovered/Resolved]
  - Application site erythema [Recovered/Resolved]
  - Pruritus [Recovered/Resolved]
